FAERS Safety Report 6628425-4 (Version None)
Quarter: 2010Q1

REPORT INFORMATION
  Report Type: 
  Country: None (occurrence: None)
  Receive Date: 20100311
  Receipt Date: 20100226
  Transmission Date: 20100710
  Serious: Yes (Other)
  Sender: FDA-Public Use
  Company Number: BR-PFIZER INC-2010025230

PATIENT
  Age: 25 Year
  Sex: Female
  Weight: 52 kg

DRUGS (4)
  1. EPELIN [Suspect]
     Indication: CONVULSION
     Dosage: UNK
     Route: 048
  2. EPELIN [Suspect]
     Indication: EPILEPSY
  3. PHENOBARBITAL [Concomitant]
     Dosage: UNK
  4. FERROUS SULFATE [Concomitant]
     Dosage: UNK

REACTIONS (2)
  - APHONIA [None]
  - CONVULSION [None]
